FAERS Safety Report 8195620-5 (Version None)
Quarter: 2012Q1

REPORT INFORMATION
  Report Type: 
  Country: None (occurrence: None)
  Receive Date: 20120308
  Receipt Date: 20120305
  Transmission Date: 20120608
  Serious: Yes (Hospitalization)
  Sender: FDA-Public Use
  Company Number: FR-FRI-1000028934

PATIENT
  Age: 83 Year
  Sex: Female

DRUGS (6)
  1. NEBIVOLOL [Suspect]
     Route: 048
     Dates: start: 20111001, end: 20110101
  2. LASIX [Concomitant]
     Dosage: INCREASED DOSAGE (NOS)
     Route: 048
     Dates: start: 20111201
  3. RAMIPRIL [Concomitant]
     Route: 048
     Dates: start: 20111001
  4. LASIX [Concomitant]
     Route: 048
     Dates: start: 20110801
  5. ALLOPURINOL [Concomitant]
     Route: 048
     Dates: start: 20111101, end: 20111201
  6. ANAGRELIDE HYDROCHLORIDE [Suspect]
     Indication: CARDIAC FAILURE
     Route: 048
     Dates: start: 20100101, end: 20111101

REACTIONS (3)
  - SCAB [None]
  - SKIN ULCER [None]
  - PRURITUS [None]
